FAERS Safety Report 4662467-3 (Version None)
Quarter: 2005Q2

REPORT INFORMATION
  Report Type: 
  Country: None (occurrence: None)
  Receive Date: 20050513
  Receipt Date: 20050513
  Transmission Date: 20051028
  Serious: Yes (Hospitalization)
  Sender: FDA-Public Use
  Company Number: None

PATIENT
  Age: 76 Year
  Sex: Male

DRUGS (18)
  1. GATIFLOXACIN [Suspect]
     Indication: URINARY TRACT INFECTION
     Dosage: 400MG   PO   QD
     Route: 048
     Dates: start: 20050326, end: 20050329
  2. ACETAMINOPHEN AND CODEINE PHOSPHATE [Concomitant]
  3. ATENOLOL [Concomitant]
  4. BISACODYL [Concomitant]
  5. DOCUSATE [Concomitant]
  6. EMULSION TOP CRM [Concomitant]
  7. FELODIPINE [Concomitant]
  8. GLYBURIDE [Concomitant]
  9. HYDROCHLOROTHIAZIDE [Concomitant]
  10. IMIPRAMINE HCL [Concomitant]
  11. IRBESARTAN [Concomitant]
  12. ISOSORBIDE MONONITRATE [Concomitant]
  13. LACTULOSE [Concomitant]
  14. METFORMIN HCL [Concomitant]
  15. MICONAZOLE NITRATE 2% [Concomitant]
  16. PHENAZOPYRIDINE HCL TAB [Concomitant]
  17. SIMVASTATIN [Concomitant]
  18. TRAMADOL HCL [Concomitant]

REACTIONS (6)
  - BACTERAEMIA [None]
  - CELLULITIS [None]
  - DIABETIC KETOACIDOSIS [None]
  - HYPERGLYCAEMIA [None]
  - RENAL FAILURE [None]
  - SCROTAL DISORDER [None]
